FAERS Safety Report 11985058 (Version 2)
Quarter: 2016Q1

REPORT INFORMATION
  Report Type: Spontaneous
  Country: SA (occurrence: SA)
  Receive Date: 20160201
  Receipt Date: 20160215
  Transmission Date: 20160526
  Serious: Yes (Death)
  Sender: FDA-Public Use
  Company Number: SA-ABBVIE-16P-259-1535009-00

PATIENT
  Age: 0 Day
  Sex: Male
  Weight: .96 kg

DRUGS (2)
  1. SURVANTA [Suspect]
     Active Substance: BERACTANT
     Indication: ACUTE RESPIRATORY DISTRESS SYNDROME
     Dosage: 4 ML/KG
     Route: 065
     Dates: start: 20160107, end: 20160108
  2. SURVANTA [Suspect]
     Active Substance: BERACTANT
     Dosage: 4 ML/KG
     Route: 065
     Dates: start: 20160108

REACTIONS (1)
  - Pulmonary haemorrhage [Fatal]

NARRATIVE: CASE EVENT DATE: 20160107
